FAERS Safety Report 12250325 (Version 1)
Quarter: 2016Q2

REPORT INFORMATION
  Report Type: Spontaneous
  Country: IT (occurrence: IT)
  Receive Date: 20160408
  Receipt Date: 20160408
  Transmission Date: 20160815
  Serious: Yes (Other)
  Sender: FDA-Public Use
  Company Number: PHHY2016IT045193

PATIENT
  Age: 48 Year
  Sex: Female

DRUGS (4)
  1. PACLITAXEL SANDOZ [Suspect]
     Active Substance: PACLITAXEL
     Dosage: 100 MG
     Route: 065
  2. ONDANSETRON [Concomitant]
     Active Substance: ONDANSETRON
     Indication: PRODUCT USED FOR UNKNOWN INDICATION
     Route: 048
  3. AVASTIN [Suspect]
     Active Substance: BEVACIZUMAB
     Indication: BREAST CANCER
     Dosage: 600 MG, CYCLIC
     Route: 042
     Dates: start: 20160108, end: 20160304
  4. PACLITAXEL SANDOZ [Suspect]
     Active Substance: PACLITAXEL
     Indication: BREAST CANCER
     Dosage: 140 MG, CYCLIC
     Route: 042
     Dates: start: 20160108

REACTIONS (5)
  - Muscle spasms [Recovered/Resolved]
  - Anorectal varices haemorrhage [Recovered/Resolved]
  - Diarrhoea [Recovered/Resolved]
  - Vomiting [Recovered/Resolved]
  - Presyncope [Recovered/Resolved]

NARRATIVE: CASE EVENT DATE: 20160215
